FAERS Safety Report 5825405-3 (Version None)
Quarter: 2008Q3

REPORT INFORMATION
  Report Type: 
  Country: None (occurrence: None)
  Receive Date: 20080723
  Receipt Date: 20080716
  Transmission Date: 20090109
  Serious: Yes (Other)
  Sender: FDA-Public Use
  Company Number: 14265151

PATIENT
  Sex: 0

DRUGS (1)
  1. EMSAM [Suspect]

REACTIONS (1)
  - APPENDICECTOMY [None]
